FAERS Safety Report 12134373 (Version 1)
Quarter: 2016Q1

REPORT INFORMATION
  Report Type: Spontaneous
  Country: US (occurrence: US)
  Receive Date: 20160301
  Receipt Date: 20160301
  Transmission Date: 20160526
  Serious: No
  Sender: FDA-Public Use
  Company Number: US-ENDO PHARMACEUTICALS INC.-2015-004801

PATIENT
  Age: 27 Year
  Sex: Male
  Weight: 143.01 kg

DRUGS (1)
  1. NATESTO [Suspect]
     Active Substance: TESTOSTERONE
     Indication: BLOOD TESTOSTERONE DECREASED
     Route: 045
     Dates: start: 20151204

REACTIONS (1)
  - Upper-airway cough syndrome [Recovered/Resolved]

NARRATIVE: CASE EVENT DATE: 20151204
